FAERS Safety Report 6879550-4 (Version None)
Quarter: 2010Q3

REPORT INFORMATION
  Report Type: 
  Country: None (occurrence: None)
  Receive Date: 20100728
  Receipt Date: 20100720
  Transmission Date: 20110219
  Serious: Yes (Hospitalization)
  Sender: FDA-Public Use
  Company Number: PHHY2010IT37250

PATIENT
  Sex: Female

DRUGS (8)
  1. EXELON [Suspect]
     Indication: DEMENTIA ALZHEIMER'S TYPE
     Dosage: 3 MG, 2 POSOLOGIC UNITS
     Route: 048
     Dates: start: 20090101
  2. ASPIRIN [Suspect]
     Indication: PROPHYLAXIS
     Dosage: 1 POSOLOGIC UNIT DAILY
     Route: 048
     Dates: start: 20090101, end: 20100510
  3. MEMANTINE HCL [Concomitant]
     Dosage: 2 POSOLOGIC UNITS
  4. LERCADIP [Concomitant]
     Dosage: 1 POSOLOGIC UNIT
  5. PERIDON [Concomitant]
     Dosage: 3 POSOLOGIC UNITS
  6. DIDROGYL [Concomitant]
     Dosage: 6 DROPS
     Route: 048
  7. FORTILENE [Concomitant]
     Dosage: UNK
  8. FORTILASE (FOOD INTEGRATOR) [Concomitant]

REACTIONS (4)
  - ANAEMIA [None]
  - GASTRITIS EROSIVE [None]
  - GASTROINTESTINAL HAEMORRHAGE [None]
  - HIATUS HERNIA [None]
